FAERS Safety Report 24678636 (Version 1)
Quarter: 2024Q4

REPORT INFORMATION
  Report Type: Report from Study
  Country: ES (occurrence: ES)
  Receive Date: 20241129
  Receipt Date: 20241129
  Transmission Date: 20250115
  Serious: Yes (Other)
  Sender: JOHNSON AND JOHNSON
  Company Number: ES-SUN PHARMACEUTICAL INDUSTRIES LTD-2024RR-478337

PATIENT
  Age: 86 Year
  Sex: Male

DRUGS (1)
  1. ABIRATERONE [Suspect]
     Active Substance: ABIRATERONE\ABIRATERONE ACETATE
     Indication: Prostate cancer metastatic
     Route: 065

REACTIONS (9)
  - Hyponatraemia [Unknown]
  - Cardiac arrest [Unknown]
  - Atrial fibrillation [Unknown]
  - Ascites [Unknown]
  - Oedema peripheral [Unknown]
  - Dyspnoea [Unknown]
  - Oedema [Unknown]
  - Rales [Unknown]
  - Disorientation [Unknown]
